FAERS Safety Report 25622760 (Version 2)
Quarter: 2025Q3

REPORT INFORMATION
  Report Type: Report from Study
  Country: MX (occurrence: MX)
  Receive Date: 20250730
  Receipt Date: 20250909
  Transmission Date: 20251021
  Serious: Yes (Other)
  Sender: NOVARTIS
  Company Number: MX-002147023-NVSC2025MX097243

PATIENT
  Age: 56 Year
  Sex: Female
  Weight: 69 kg

DRUGS (4)
  1. COSENTYX [Suspect]
     Active Substance: SECUKINUMAB
     Indication: Psoriatic arthropathy
     Dosage: 300 MG, QMO
     Route: 058
     Dates: start: 202409, end: 202504
  2. COSENTYX [Suspect]
     Active Substance: SECUKINUMAB
     Dosage: 300 MG, QMO
     Route: 065
     Dates: start: 202506
  3. CALCIUM [Concomitant]
     Active Substance: CALCIUM
     Indication: Psoriatic arthropathy
     Dosage: 1 DOSAGE FORM, (1 TABLET OF 600MG) Q24H
     Route: 048
  4. VITAMIN D [Concomitant]
     Active Substance: VITAMIN D NOS
     Indication: Psoriatic arthropathy
     Dosage: 1 DOSAGE FORM, (1 TABLET OF 4000UI) Q24H
     Route: 048

REACTIONS (3)
  - Urinary tract infection [Recovered/Resolved]
  - Diabetes mellitus [Not Recovered/Not Resolved]
  - Discomfort [Recovered/Resolved]

NARRATIVE: CASE EVENT DATE: 20250401
